FAERS Safety Report 16249276 (Version 1)
Quarter: 2019Q2

REPORT INFORMATION
  Report Type: Spontaneous
  Country: US (occurrence: US)
  Receive Date: 20190429
  Receipt Date: 20190429
  Transmission Date: 20190711
  Serious: Yes (Death, Other)
  Sender: FDA-Public Use
  Company Number: US-ROCHE-2308913

PATIENT
  Age: 89 Year
  Sex: Female

DRUGS (3)
  1. ACTIVASE [Suspect]
     Active Substance: ALTEPLASE
     Indication: ISCHAEMIC STROKE
     Route: 065
     Dates: start: 20190421
  2. CARDENE [Concomitant]
     Active Substance: NICARDIPINE HYDROCHLORIDE
  3. LABETALOL [Concomitant]
     Active Substance: LABETALOL\LABETALOL HYDROCHLORIDE

REACTIONS (5)
  - Cerebellar haemorrhage [Unknown]
  - Bradycardia [Unknown]
  - Cardiac arrest [Unknown]
  - Lethargy [Unknown]
  - Death [Fatal]
